FAERS Safety Report 10538577 (Version 2)
Quarter: 2014Q4

REPORT INFORMATION
  Report Type: Report from Study
  Country: BG (occurrence: BG)
  Receive Date: 20141023
  Receipt Date: 20141204
  Transmission Date: 20150529
  Serious: Yes (Hospitalization, Other)
  Sender: FDA-Public Use
  Company Number: BG-BRISTOL-MYERS SQUIBB COMPANY-21489414

PATIENT
  Age: 63 Year
  Sex: Male

DRUGS (10)
  1. METFORMIN [Concomitant]
     Active Substance: METFORMIN HYDROCHLORIDE
     Indication: TYPE 2 DIABETES MELLITUS
     Route: 048
  2. RYTMONORM [Concomitant]
     Active Substance: PROPAFENONE
     Indication: ATRIAL FIBRILLATION
     Route: 048
  3. LEVEMIR [Concomitant]
     Active Substance: INSULIN DETEMIR
     Indication: TYPE 2 DIABETES MELLITUS
     Route: 058
  4. BLINDED DAPAGLIFLOZIN [Suspect]
     Active Substance: DAPAGLIFLOZIN
     Indication: TYPE 2 DIABETES MELLITUS
     Dosage: RUNNING PHASE DATES 2013AUG01-2013SEP26  LAST DOSE:22AUG14
     Route: 065
     Dates: start: 20130926, end: 20140822
  5. IVABRADINE [Concomitant]
     Active Substance: IVABRADINE
     Indication: MYOCARDIAL ISCHAEMIA
     Route: 048
  6. FOKUSIN [Concomitant]
     Indication: BENIGN PROSTATIC HYPERPLASIA
     Route: 048
  7. RAWEL [Concomitant]
     Indication: HYPERTENSION
     Route: 048
  8. TWYNSTA [Concomitant]
     Active Substance: AMLODIPINE BESYLATE\TELMISARTAN
     Indication: HYPERTENSION
     Route: 048
  9. PLACEBO [Suspect]
     Active Substance: UNSPECIFIED INGREDIENT
     Indication: TYPE 2 DIABETES MELLITUS
     Dosage: RUNNING PHASE DATES 2013AUG01-2013SEP26  LAST DOSE:22AUG14
     Route: 065
     Dates: start: 20130926, end: 20140822
  10. BISOGAMMA [Concomitant]
     Indication: HYPERTENSION
     Route: 048

REACTIONS (1)
  - Bladder cancer [Recovering/Resolving]

NARRATIVE: CASE EVENT DATE: 20140923
